FAERS Safety Report 19631413 (Version 1)
Quarter: 2021Q3

REPORT INFORMATION
  Report Type: Spontaneous
  Country: US (occurrence: US)
  Receive Date: 20210728
  Receipt Date: 20210728
  Transmission Date: 20211014
  Serious: No
  Sender: FDA-Public Use
  Company Number: US-IGSA-BIG0011639

PATIENT
  Age: 51 Year
  Sex: Female

DRUGS (3)
  1. TRAMADOL. [Concomitant]
     Active Substance: TRAMADOL
     Indication: PREMEDICATION
     Dosage: UNK
     Route: 048
     Dates: start: 2018
  2. CELECOXIB. [Concomitant]
     Active Substance: CELECOXIB
     Indication: PREMEDICATION
     Dosage: UNK
     Route: 048
     Dates: start: 2018
  3. HUMAN NORMAL IMMUNOGLOBULIN (IV) [Suspect]
     Active Substance: HUMAN IMMUNOGLOBULIN G
     Indication: IMMUNE-MEDIATED MYOSITIS
     Dosage: 2 GRAM PER KILOGRAM, Q.M.T.
     Route: 042
     Dates: start: 2018, end: 2018

REACTIONS (1)
  - Headache [Recovered/Resolved]

NARRATIVE: CASE EVENT DATE: 2018
